FAERS Safety Report 20830332 (Version 1)
Quarter: 2022Q2

REPORT INFORMATION
  Report Type: Spontaneous
  Country: ES (occurrence: ES)
  Receive Date: 20220514
  Receipt Date: 20220514
  Transmission Date: 20220721
  Serious: Yes (Hospitalization)
  Sender: FDA-Public Use
  Company Number: ES-Accord-240005

PATIENT
  Age: 69 Year
  Sex: Male
  Weight: 91 kg

DRUGS (26)
  1. OXALIPLATIN [Suspect]
     Active Substance: OXALIPLATIN
     Dosage: 100 MG/M2
     Route: 042
     Dates: start: 20210719, end: 20210719
  2. DEXAMETHASONE SODIUM PHOSPHATE [Suspect]
     Active Substance: DEXAMETHASONE SODIUM PHOSPHATE
     Dosage: QD,40 MG
     Route: 042
     Dates: start: 20210719, end: 20210720
  3. EPCORITAMAB [Suspect]
     Active Substance: EPCORITAMAB
     Dosage: PRIMING DOSE: 0.16MG, SINGLE
     Route: 058
     Dates: start: 20210719, end: 20210719
  4. CYTARABINE [Suspect]
     Active Substance: CYTARABINE
     Dosage: SINGLE,2000 MG/M2
     Route: 042
     Dates: start: 20210720, end: 20210720
  5. RITUXIMAB [Suspect]
     Active Substance: RITUXIMAB
     Dosage: 1Q3W;375 MG/M2
     Route: 042
     Dates: start: 20210719, end: 20210719
  6. INSULIN NOS [Concomitant]
     Active Substance: INSULIN NOS
     Dosage: ROA: UNKNOWN
     Dates: start: 20210725
  7. METHYLPREDNISOLONE [Concomitant]
     Active Substance: METHYLPREDNISOLONE
     Dosage: ROA: UNKNOWN
     Dates: start: 20210830, end: 20210830
  8. PIPERACILLIN SODIUM [Concomitant]
     Active Substance: PIPERACILLIN SODIUM
     Dosage: ROA: UNKNOWN
     Dates: start: 20210822, end: 20210822
  9. MEROPENEM [Concomitant]
     Active Substance: MEROPENEM
     Dosage: ROA: UNKNOWN
     Dates: start: 20210829, end: 20210911
  10. HYDROCHLOROTHIAZIDE [Concomitant]
     Active Substance: HYDROCHLOROTHIAZIDE
     Dates: start: 20180208
  11. DEXCHLORPHENIRAMINE MALEATE [Concomitant]
     Active Substance: DEXCHLORPHENIRAMINE MALEATE
     Dates: start: 20210719, end: 20210719
  12. MOVICOL [Concomitant]
     Active Substance: POLYETHYLENE GLYCOL 3350\POTASSIUM CHLORIDE\SODIUM BICARBONATE\SODIUM CHLORIDE
     Dosage: ROA: UNKNOWN
     Dates: start: 20210812, end: 20210812
  13. NOREPINEPHRINE [Concomitant]
     Active Substance: NOREPINEPHRINE
     Dosage: ROA: UNKNOWN
     Dates: start: 20210829, end: 20210830
  14. TAZOBACTAM [Concomitant]
     Active Substance: TAZOBACTAM
     Dosage: ROA: UNKNOWN
     Dates: start: 20210822, end: 20210822
  15. CEFTRIAXONE [Concomitant]
     Active Substance: CEFTRIAXONE
     Dosage: ROA: UNKNOWN
     Dates: start: 20210824, end: 20210904
  16. LOSARTAN [Concomitant]
     Active Substance: LOSARTAN
     Dates: start: 20180208
  17. PREGABALIN [Concomitant]
     Active Substance: PREGABALIN
     Dosage: ROA: UNKNOWN
     Dates: start: 20210719
  18. CYCLOPHOSPHAMIDE [Concomitant]
     Active Substance: CYCLOPHOSPHAMIDE
     Dosage: ROA: UNKNOWN
     Dates: start: 20210830, end: 20210830
  19. AMIKACIN [Concomitant]
     Active Substance: AMIKACIN
     Dosage: ROA: UNKNOWN
     Dates: start: 20210826
  20. RASBURICASE [Concomitant]
     Active Substance: RASBURICASE
     Dosage: ROA: UNKNOWN
     Dates: start: 20210830, end: 20210830
  21. METAMIZOLE [Concomitant]
     Active Substance: METAMIZOLE
     Dosage: ROA: UNKNOWN
     Dates: start: 20210823, end: 20210823
  22. ADENOSINE [Concomitant]
     Active Substance: ADENOSINE
     Dosage: ROA: UNKNOWN
     Dates: start: 20210830, end: 20210830
  23. AMIODARONE [Concomitant]
     Active Substance: AMIODARONE
     Dosage: ROA: UNKNOWN
     Dates: start: 20210830, end: 20210830
  24. POSACONAZOLE [Concomitant]
     Active Substance: POSACONAZOLE
     Dosage: ROA: UNKNOWN
     Dates: start: 20210722
  25. ACETAMINOPHEN [Concomitant]
     Active Substance: ACETAMINOPHEN
     Dates: start: 20210719, end: 20210719
  26. ACETAMINOPHEN [Concomitant]
     Active Substance: ACETAMINOPHEN
     Dates: start: 20210823, end: 20210823

REACTIONS (2)
  - Immune effector cell-associated neurotoxicity syndrome [Recovered/Resolved]
  - Off label use [Unknown]

NARRATIVE: CASE EVENT DATE: 20210721
